FAERS Safety Report 25391923 (Version 2)
Quarter: 2025Q2

REPORT INFORMATION
  Report Type: Spontaneous
  Country: JP (occurrence: JP)
  Receive Date: 20250603
  Receipt Date: 20250627
  Transmission Date: 20250716
  Serious: Yes (Other)
  Sender: PFIZER
  Company Number: JP-PFIZER INC-PV202500066153

PATIENT
  Age: 7 Decade
  Sex: Female

DRUGS (2)
  1. LORBRENA [Suspect]
     Active Substance: LORLATINIB
  2. LORBRENA [Suspect]
     Active Substance: LORLATINIB
     Dosage: 75 MG, DAILY

REACTIONS (8)
  - Hallucinations, mixed [Unknown]
  - Neuropathy peripheral [Unknown]
  - Pain in extremity [Unknown]
  - Hypoaesthesia [Unknown]
  - Face oedema [Unknown]
  - Oedema peripheral [Unknown]
  - Hypercholesterolaemia [Unknown]
  - Hypertriglyceridaemia [Unknown]
